FAERS Safety Report 9871605 (Version 1)
Quarter: 2014Q1

REPORT INFORMATION
  Report Type: Spontaneous
  Country: ES (occurrence: ES)
  Receive Date: 20140205
  Receipt Date: 20140205
  Transmission Date: 20141002
  Serious: Yes (Other)
  Sender: FDA-Public Use
  Company Number: ES-UCBSA-111083

PATIENT
  Sex: Female

DRUGS (1)
  1. CIMZIA [Suspect]
     Dosage: UNKNOWN DOSE
     Route: 058
     Dates: end: 201312

REACTIONS (2)
  - Respiratory failure [Recovering/Resolving]
  - Respiratory distress [Recovering/Resolving]
